FAERS Safety Report 5397234-9 (Version None)
Quarter: 2007Q3

REPORT INFORMATION
  Report Type: 
  Country: None (occurrence: None)
  Receive Date: 20070723
  Receipt Date: 20070713
  Transmission Date: 20080115
  Serious: Yes (Hospitalization)
  Sender: FDA-Public Use
  Company Number: 2007SP002541

PATIENT
  Sex: Female

DRUGS (3)
  1. LUNESTA [Suspect]
     Indication: INSOMNIA
     Dosage: 3 MG;ORAL; 180 MG; ORAL
     Route: 048
     Dates: start: 20070301, end: 20070601
  2. LUNESTA [Suspect]
     Indication: INSOMNIA
     Dosage: 3 MG;ORAL; 180 MG; ORAL
     Route: 048
     Dates: start: 20070601, end: 20070601
  3. LEXAPRO [Concomitant]

REACTIONS (1)
  - SUICIDE ATTEMPT [None]
